FAERS Safety Report 12639742 (Version 2)
Quarter: 2016Q3

REPORT INFORMATION
  Report Type: Report from Study
  Country: CA (occurrence: CA)
  Receive Date: 20160810
  Receipt Date: 20160819
  Transmission Date: 20161109
  Serious: Yes (Hospitalization, Other)
  Sender: FDA-Public Use
  Company Number: CA-AMGEN-CANSL2016101931

PATIENT
  Age: 85 Year
  Sex: Female

DRUGS (5)
  1. VITAMIN B12 [Concomitant]
     Active Substance: CYANOCOBALAMIN
  2. VITAMIN D [Concomitant]
     Active Substance: CHOLECALCIFEROL
  3. ENALAPRIL [Concomitant]
     Active Substance: ENALAPRIL
  4. CALCIUM [Concomitant]
     Active Substance: CALCIUM
  5. PROLIA [Suspect]
     Active Substance: DENOSUMAB
     Indication: PRODUCT USED FOR UNKNOWN INDICATION
     Dosage: 60 MG/ML,
     Route: 065
     Dates: start: 20150825

REACTIONS (10)
  - Spinal fracture [Unknown]
  - Pain in extremity [Unknown]
  - Balance disorder [Unknown]
  - Pyrexia [Unknown]
  - Irritability [Unknown]
  - Burning sensation [Unknown]
  - Lung neoplasm malignant [Unknown]
  - Fall [Unknown]
  - Myalgia [Unknown]
  - Bone pain [Unknown]

NARRATIVE: CASE EVENT DATE: 2015
